FAERS Safety Report 7969132-5 (Version None)
Quarter: 2011Q4

REPORT INFORMATION
  Report Type: 
  Country: None (occurrence: None)
  Receive Date: 20111209
  Receipt Date: 20111204
  Transmission Date: 20120403
  Serious: Yes (Other)
  Sender: FDA-Public Use
  Company Number: AU-ROCHE-1003207

PATIENT
  Sex: Female

DRUGS (4)
  1. ACTEMRA [Suspect]
     Indication: RHEUMATOID ARTHRITIS
     Route: 065
     Dates: start: 20110910
  2. PREDNISONE [Concomitant]
     Route: 065
  3. THYROXIN [Concomitant]
     Route: 065
  4. RULIDE [Concomitant]
     Route: 065

REACTIONS (2)
  - THYROID NEOPLASM [None]
  - LOWER RESPIRATORY TRACT INFECTION [None]
